FAERS Safety Report 4639637-3 (Version None)
Quarter: 2005Q2

REPORT INFORMATION
  Report Type: 
  Country: None (occurrence: None)
  Receive Date: 20050328
  Receipt Date: 20041217
  Transmission Date: 20051028
  Serious: No
  Sender: FDA-Public Use
  Company Number: USA041286568

PATIENT
  Sex: Male

DRUGS (4)
  1. STRATTERA [Suspect]
  2. ALBUTEROL [Concomitant]
  3. FLOVENT [Concomitant]
  4. ASPIRIN [Concomitant]

REACTIONS (4)
  - DECREASED APPETITE [None]
  - DISCOMFORT [None]
  - THIRST [None]
  - URINARY HESITATION [None]
